FAERS Safety Report 24463233 (Version 1)
Quarter: 2024Q4

REPORT INFORMATION
  Report Type: Report from Study
  Country: US (occurrence: US)
  Receive Date: 20241018
  Receipt Date: 20241018
  Transmission Date: 20250115
  Serious: No
  Sender: ROCHE
  Company Number: US-ROCHE-2745828

PATIENT
  Age: 16 Year
  Sex: Female
  Weight: 99.3 kg

DRUGS (3)
  1. XOLAIR [Suspect]
     Active Substance: OMALIZUMAB
     Indication: Asthma
     Dosage: LAST INJECTION DATE: 04/JAN/2021
     Route: 058
  2. XOLAIR [Suspect]
     Active Substance: OMALIZUMAB
     Indication: Asthma
  3. XOLAIR [Suspect]
     Active Substance: OMALIZUMAB
     Indication: Asthma
     Route: 058

REACTIONS (6)
  - Off label use [Unknown]
  - Forced vital capacity decreased [Unknown]
  - Forced expiratory volume decreased [Unknown]
  - White blood cell count increased [Unknown]
  - Red cell distribution width decreased [Unknown]
  - Neutrophil count increased [Unknown]
